FAERS Safety Report 18060352 (Version 1)
Quarter: 2020Q3

REPORT INFORMATION
  Report Type: Spontaneous
  Country: NL (occurrence: NL)
  Receive Date: 20200723
  Receipt Date: 20200723
  Transmission Date: 20201103
  Serious: Yes (Other)
  Sender: FDA-Public Use
  Company Number: NL-MYLANLABS-2020M1065527

PATIENT
  Age: 37 Year
  Sex: Female
  Weight: 60 kg

DRUGS (5)
  1. METOCLOPRAMIDE. [Concomitant]
     Active Substance: METOCLOPRAMIDE
     Dosage: TABLET, 10 MG (MILLIGRAM)
  2. KEPPRA [Concomitant]
     Active Substance: LEVETIRACETAM
     Dosage: FILMOMHULDE TABLET, 1000 MG (MILLIGRAM)
  3. COLECALCIFEROL [Concomitant]
     Active Substance: CHOLECALCIFEROL
     Dosage: CAPSULE, 800 EENHEDEN
  4. PANTOPRAZOLE [Suspect]
     Active Substance: PANTOPRAZOLE
     Indication: DUODENITIS
     Dosage: 1 X PER DAG 1 STUK, 20 MG
     Dates: start: 20200629, end: 20200703
  5. DEPAKINE                           /00228501/ [Concomitant]
     Active Substance: VALPROIC ACID
     Dosage: TABLET MET GEREGULEERDE AFGIFTE, 300 MG (MILLIGRAM)

REACTIONS (1)
  - Epilepsy [Unknown]

NARRATIVE: CASE EVENT DATE: 20200629
